FAERS Safety Report 9235966 (Version 1)
Quarter: 2013Q2

REPORT INFORMATION
  Report Type: Spontaneous
  Country: IR (occurrence: IR)
  Receive Date: 20130417
  Receipt Date: 20130417
  Transmission Date: 20140414
  Serious: Yes (Other)
  Sender: FDA-Public Use
  Company Number: IR-ABBOTT-13P-080-1074378-00

PATIENT
  Age: 56 Year
  Sex: Male

DRUGS (6)
  1. CYCLOSPORINE [Suspect]
  2. EZETIMIBE [Interacting]
     Indication: BLOOD CHOLESTEROL ABNORMAL
  3. GEMFIBROZIL [Interacting]
     Indication: HYPERLIPIDAEMIA
  4. PREDNISONE [Concomitant]
     Indication: IMMUNOSUPPRESSANT DRUG THERAPY
  5. MYCOPHENOLATE MOFETILE [Concomitant]
     Indication: IMMUNOSUPPRESSANT DRUG THERAPY
  6. ATORVASTATIN [Concomitant]
     Indication: HYPERLIPIDAEMIA

REACTIONS (4)
  - Drug interaction [Recovered/Resolved]
  - Transplant rejection [Recovered/Resolved]
  - Blood creatinine increased [Recovered/Resolved]
  - Immunosuppressant drug level decreased [Recovered/Resolved]
